FAERS Safety Report 6587970-0 (Version None)
Quarter: 2010Q1

REPORT INFORMATION
  Report Type: 
  Country: None (occurrence: None)
  Receive Date: 20100218
  Receipt Date: 20100216
  Transmission Date: 20100710
  Serious: Yes (Congenital Anomaly, Other)
  Sender: FDA-Public Use
  Company Number: FR-BRISTOL-MYERS SQUIBB COMPANY-14017800

PATIENT
  Age: 31 Year
  Sex: Female
  Weight: 68 kg

DRUGS (3)
  1. SUSTIVA [Suspect]
     Indication: ANTIRETROVIRAL THERAPY
     Dosage: 1 DF = 1 TABLET NO OF COURSE:1
     Route: 048
     Dates: start: 20051201, end: 20071211
  2. TRUVADA [Suspect]
     Indication: ANTIRETROVIRAL THERAPY
     Dosage: 1 DOSAGE FORM=1 TABLET.
     Route: 048
     Dates: start: 20051201
  3. FUMAFER [Concomitant]
     Indication: IRON DEFICIENCY
     Dates: start: 20071101

REACTIONS (3)
  - ABORTION INDUCED [None]
  - HEART DISEASE CONGENITAL [None]
  - PREGNANCY [None]
